FAERS Safety Report 8919484 (Version 5)
Quarter: 2013Q4

REPORT INFORMATION
  Report Type: Spontaneous
  Country: US (occurrence: US)
  Receive Date: 20121121
  Receipt Date: 20131107
  Transmission Date: 20140711
  Serious: Yes (Hospitalization, Other)
  Sender: FDA-Public Use
  Company Number: US-009507513-1211USA007929

PATIENT
  Sex: Female
  Weight: 63.49 kg

DRUGS (4)
  1. FOSAMAX [Suspect]
     Indication: OSTEOPOROSIS
     Dosage: 10 MG, UNK
     Route: 048
     Dates: start: 199601, end: 200110
  2. FOSAMAX [Suspect]
     Dosage: 70 MG, UNK
     Route: 048
     Dates: start: 200110, end: 20071123
  3. FOSAMAX [Suspect]
     Dosage: 70 MG, QW
     Route: 048
  4. ALENDRONATE SODIUM [Suspect]
     Indication: OSTEOPOROSIS
     Dosage: 70 MG, UNK
     Route: 048
     Dates: start: 20080303, end: 20101113

REACTIONS (22)
  - Femur fracture [Recovered/Resolved]
  - Intramedullary rod insertion [Recovered/Resolved]
  - Knee arthroplasty [Unknown]
  - Spinal laminectomy [Unknown]
  - Open reduction of fracture [Unknown]
  - Head injury [Unknown]
  - Knee arthroplasty [Recovering/Resolving]
  - Fracture nonunion [Unknown]
  - Fall [Unknown]
  - Hyperlipidaemia [Unknown]
  - Vitamin D deficiency [Unknown]
  - Lumbar spinal stenosis [Unknown]
  - Epidural injection [Unknown]
  - Osteoarthritis [Unknown]
  - Joint instability [Unknown]
  - Fall [Unknown]
  - Hysterectomy [Unknown]
  - Fall [Unknown]
  - Foot fracture [Unknown]
  - Exostosis [Unknown]
  - Foot deformity [Unknown]
  - Body temperature increased [Unknown]
